FAERS Safety Report 10004088 (Version 2)
Quarter: 2014Q2

REPORT INFORMATION
  Report Type: Spontaneous
  Country: JP (occurrence: JP)
  Receive Date: 20140312
  Receipt Date: 20140620
  Transmission Date: 20141212
  Serious: Yes (Death, Other)
  Sender: FDA-Public Use
  Company Number: PHHY2014JP030280

PATIENT
  Age: 49 Year
  Sex: Female

DRUGS (6)
  1. NEORAL [Suspect]
     Indication: PROPHYLAXIS AGAINST GRAFT VERSUS HOST DISEASE
  2. NEORAL [Suspect]
     Indication: STEM CELL TRANSPLANT
  3. BUSULFAN [Suspect]
     Indication: NON-HODGKIN^S LYMPHOMA
     Dosage: 3.2 MG/KG, QD
  4. CYCLOPHOSPHAMIDE [Suspect]
     Indication: NON-HODGKIN^S LYMPHOMA
     Dosage: 60 MG/KG, QD
  5. ACYCLOVIR [Concomitant]
     Indication: HERPES SIMPLEX
     Dosage: 1000 MG, UNK
     Route: 048
  6. IMMUNOGLOBULINS [Concomitant]
     Route: 042

REACTIONS (5)
  - Pulmonary alveolar haemorrhage [Fatal]
  - Graft versus host disease [Fatal]
  - Cystitis haemorrhagic [Unknown]
  - Adenovirus infection [Unknown]
  - BK virus infection [Unknown]
